FAERS Safety Report 7761006 (Version 3)
Quarter: 2013Q4

REPORT INFORMATION
  Report Type: Report from Study
  Country: FR (occurrence: FR)
  Receive Date: 20110114
  Receipt Date: 20131216
  Transmission Date: 20140711
  Serious: Yes (Death, Other)
  Sender: FDA-Public Use
  Company Number: FR-ROCHE-752139

PATIENT
  Sex: Female

DRUGS (4)
  1. TRASTUZUMAB [Suspect]
     Indication: BREAST CANCER METASTATIC
     Dosage: LOADING DOSE ON DAY 1 OF CYCLE 1
     Route: 042
  2. TRASTUZUMAB [Suspect]
     Dosage: MAINTENANCE DOSE
     Route: 042
  3. EVEROLIMUS [Suspect]
     Indication: BREAST CANCER METASTATIC
     Route: 048
  4. PACLITAXEL [Suspect]
     Indication: BREAST CANCER METASTATIC
     Dosage: ON DAYS 1, 8, AND 15
     Route: 065

REACTIONS (26)
  - Sepsis [Fatal]
  - Neutropenia [Unknown]
  - Lymphopenia [Unknown]
  - Leukopenia [Unknown]
  - Anaemia [Unknown]
  - Thrombocytopenia [Unknown]
  - Febrile neutropenia [Unknown]
  - Stomatitis [Unknown]
  - Asthenia [Unknown]
  - Diarrhoea [Unknown]
  - Alopecia [Unknown]
  - Metabolic disorder [Unknown]
  - Aspartate aminotransferase increased [Unknown]
  - Blood creatinine increased [Unknown]
  - Gastrointestinal haemorrhage [Unknown]
  - Interstitial lung disease [Unknown]
  - Arrhythmia [Unknown]
  - Pulmonary embolism [Unknown]
  - Confusional state [Unknown]
  - Arthralgia [Unknown]
  - Rash [Unknown]
  - Headache [Unknown]
  - Pyrexia [Unknown]
  - Neuropathy peripheral [Unknown]
  - Vomiting [Unknown]
  - Pneumonia [Unknown]
